FAERS Safety Report 19881316 (Version 1)
Quarter: 2021Q3

REPORT INFORMATION
  Report Type: Spontaneous
  Country: GB (occurrence: GB)
  Receive Date: 20210924
  Receipt Date: 20210924
  Transmission Date: 20211014
  Serious: Yes (Life-Threatening, Hospitalization, Other)
  Sender: FDA-Public Use
  Company Number: GB-MYLANLABS-2021M1063480

PATIENT
  Age: 45 Year
  Sex: Male
  Weight: 82 kg

DRUGS (5)
  1. FOSTAIR [Concomitant]
     Active Substance: BECLOMETHASONE\FORMOTEROL
     Dosage: UNK
  2. FONDAPARINUX SODIUM INJECTION, USP [Suspect]
     Active Substance: FONDAPARINUX SODIUM
     Indication: PRODUCT USED FOR UNKNOWN INDICATION
     Dosage: UNK
  3. ASTRAZENECA COVID?19 VACCINE [Suspect]
     Active Substance: AZD-1222
     Indication: COVID-19 IMMUNISATION
     Dosage: UNK, DOSE 1
     Dates: start: 20210506, end: 20210506
  4. PROPOFOL. [Concomitant]
     Active Substance: PROPOFOL
     Dosage: UNK
  5. SALBUTAMOL [Concomitant]
     Active Substance: ALBUTEROL
     Dosage: UNK

REACTIONS (16)
  - Head injury [Not Recovered/Not Resolved]
  - Vertigo [Not Recovered/Not Resolved]
  - Dizziness [Not Recovered/Not Resolved]
  - Hypofibrinogenaemia [Not Recovered/Not Resolved]
  - Gait disturbance [Unknown]
  - Oropharyngeal pain [Not Recovered/Not Resolved]
  - Pulmonary embolism [Unknown]
  - Nausea [Not Recovered/Not Resolved]
  - Thrombocytopenia [Recovering/Resolving]
  - Fibrin D dimer increased [Not Recovered/Not Resolved]
  - Heparin-induced thrombocytopenia [Not Recovered/Not Resolved]
  - Chills [Not Recovered/Not Resolved]
  - Headache [Not Recovered/Not Resolved]
  - Pyrexia [Recovered/Resolved]
  - Vomiting [Not Recovered/Not Resolved]
  - Haemorrhage [Unknown]

NARRATIVE: CASE EVENT DATE: 20210506
